FAERS Safety Report 8118298-5 (Version None)
Quarter: 2012Q1

REPORT INFORMATION
  Report Type: 
  Country: None (occurrence: None)
  Receive Date: 20120207
  Receipt Date: 20120201
  Transmission Date: 20120608
  Serious: Yes (Hospitalization)
  Sender: FDA-Public Use
  Company Number: AU-B.I. PHARMACEUTICALS,INC./RIDGEFIELD-2011-AU-02069AU

PATIENT
  Age: 91 Year
  Sex: Female

DRUGS (6)
  1. PRADAXA [Suspect]
     Indication: ATRIAL FIBRILLATION
  2. NOTEN [Concomitant]
  3. PRADAXA [Suspect]
     Indication: CEREBROVASCULAR ACCIDENT PROPHYLAXIS
     Dosage: 220 MG
     Dates: end: 20111102
  4. LIPITOR [Concomitant]
  5. GLYADE [Concomitant]
  6. METFORMIN HCL [Concomitant]

REACTIONS (2)
  - LARGE INTESTINE CARCINOMA [None]
  - RECTAL HAEMORRHAGE [None]
